FAERS Safety Report 17084200 (Version 2)
Quarter: 2020Q1

REPORT INFORMATION
  Report Type: Spontaneous
  Country: DE (occurrence: DE)
  Receive Date: 20191127
  Receipt Date: 20200213
  Transmission Date: 20200409
  Serious: Yes (Hospitalization, Other)
  Sender: FDA-Public Use
  Company Number: DE-NOVOPROD-697229

PATIENT
  Age: 32 Year
  Sex: Female

DRUGS (8)
  1. ORGALUTRAN [Suspect]
     Active Substance: GANIRELIX ACETATE
     Indication: ASSISTED REPRODUCTIVE TECHNOLOGY
     Dosage: 0.25 MG, QD
     Route: 058
     Dates: start: 20190806, end: 20190810
  2. ESTRIFAM [Suspect]
     Active Substance: ESTRADIOL
     Indication: ASSISTED REPRODUCTIVE TECHNOLOGY
     Dosage: 4 MG, BID
     Route: 067
     Dates: start: 20190814
  3. BREVACTID [Suspect]
     Active Substance: GONADOTROPHIN, CHORIONIC
     Indication: ASSISTED REPRODUCTIVE TECHNOLOGY
     Dosage: 750 IU, ONCE/SINGLE
     Route: 058
     Dates: start: 20190812, end: 20190812
  4. TRIPTOFEM [Suspect]
     Active Substance: TRIPTORELIN ACETATE
     Indication: OVULATION INDUCTION
     Dosage: 0.1 MG X2, ONCE/SINGLE
     Route: 058
     Dates: start: 20190811
  5. OVALEAP [Suspect]
     Active Substance: FOLLITROPIN
     Indication: ASSISTED REPRODUCTIVE TECHNOLOGY
     Dosage: 50 IU, QD
     Route: 058
     Dates: start: 20190801
  6. DUPHASTON [Suspect]
     Active Substance: DYDROGESTERONE
     Indication: ASSISTED REPRODUCTIVE TECHNOLOGY
     Dosage: 1.3 MG, TID
     Route: 048
     Dates: start: 20190814
  7. OVALEAP [Suspect]
     Active Substance: FOLLITROPIN
     Dosage: 625 IU, QD
     Route: 058
  8. OVALEAP [Suspect]
     Active Substance: FOLLITROPIN
     Dosage: 225 IU, QD
     Route: 058

REACTIONS (5)
  - Ovarian hyperstimulation syndrome [Recovered/Resolved]
  - Product use in unapproved indication [Unknown]
  - Incorrect route of product administration [Unknown]
  - Renal failure [Recovered/Resolved]
  - Off label use [Unknown]

NARRATIVE: CASE EVENT DATE: 20190814
